FAERS Safety Report 4745910-0 (Version None)
Quarter: 2005Q3

REPORT INFORMATION
  Report Type: 
  Country: None (occurrence: None)
  Receive Date: 20050816
  Receipt Date: 20050802
  Transmission Date: 20060218
  Serious: Yes (Hospitalization, Other)
  Sender: FDA-Public Use
  Company Number: 2005PK01429

PATIENT
  Age: 29371 Day
  Sex: Female
  Weight: 58 kg

DRUGS (2)
  1. NOLVADEX [Suspect]
     Indication: BREAST CANCER
     Route: 048
     Dates: start: 20010907
  2. NOVOTHYRAL [Concomitant]
     Indication: HYPOTHYROIDISM
     Route: 048

REACTIONS (4)
  - ARTERIOSCLEROSIS [None]
  - BRAIN STEM INFARCTION [None]
  - ENCEPHALOPATHY [None]
  - VERTEBROBASILAR INSUFFICIENCY [None]
